FAERS Safety Report 24442904 (Version 1)
Quarter: 2024Q4

REPORT INFORMATION
  Report Type: Spontaneous
  Country: JP (occurrence: None)
  Receive Date: 20241016
  Receipt Date: 20241016
  Transmission Date: 20250115
  Serious: Yes (Other)
  Sender: ENCUBE ETHICALS
  Company Number: JP-Encube-001380

PATIENT
  Age: 37 Year
  Sex: Female

DRUGS (1)
  1. TESTOSTERONE [Suspect]
     Active Substance: TESTOSTERONE
     Indication: Transgender hormonal therapy
     Dosage: BEGAN TESTOSTERONE THERAPY 7 YEARS AGO

REACTIONS (3)
  - Endometrial adenocarcinoma [Recovering/Resolving]
  - Obesity [Unknown]
  - Off label use [Unknown]
